FAERS Safety Report 7700526-9 (Version None)
Quarter: 2011Q3

REPORT INFORMATION
  Report Type: 
  Country: None (occurrence: None)
  Receive Date: 20110822
  Receipt Date: 20110809
  Transmission Date: 20111222
  Serious: Yes (Other)
  Sender: FDA-Public Use
  Company Number: US-UCBSA-037491

PATIENT
  Sex: Male
  Weight: 72.121 kg

DRUGS (3)
  1. METOPROLOL TARTRATE [Concomitant]
     Indication: CARDIAC DISORDER
     Route: 048
  2. GADUET [Concomitant]
     Indication: CARDIAC DISORDER
     Dosage: 10/10 MG ONE A DAY
     Route: 048
  3. CIMZIA [Suspect]
     Indication: CROHN'S DISEASE
     Dosage: 2 SHOTS
     Route: 058
     Dates: start: 20110401

REACTIONS (6)
  - DRY MOUTH [None]
  - RASH [None]
  - FUNGAL INFECTION [None]
  - OROPHARYNGEAL PAIN [None]
  - PHARYNGEAL OEDEMA [None]
  - DYSPHONIA [None]
